FAERS Safety Report 5621465-3 (Version None)
Quarter: 2008Q1

REPORT INFORMATION
  Report Type: 
  Country: None (occurrence: None)
  Receive Date: 20080211
  Receipt Date: 20080109
  Transmission Date: 20080703
  Serious: No
  Sender: FDA-Public Use
  Company Number: US-BAYER-US-2007-002962

PATIENT
  Age: 33 Year
  Sex: Female
  Weight: 84 kg

DRUGS (5)
  1. MIRENA [Suspect]
     Indication: ORAL CONTRACEPTION
     Route: 015
     Dates: start: 20060517, end: 20070115
  2. TOPAMAX [Concomitant]
     Route: 048
  3. NADOLOL [Concomitant]
     Route: 048
  4. INDERAL EXTENDED RELEASE [Concomitant]
  5. SEASONALE [Concomitant]
     Dates: start: 20050301

REACTIONS (5)
  - INFECTION [None]
  - INTRA-UTERINE CONTRACEPTIVE DEVICE EXPELLED [None]
  - METRORRHAGIA [None]
  - POLYP [None]
  - PYREXIA [None]
